FAERS Safety Report 9344805 (Version 1)
Quarter: 2013Q2

REPORT INFORMATION
  Report Type: Spontaneous
  Country: US (occurrence: US)
  Receive Date: 20130612
  Receipt Date: 20130612
  Transmission Date: 20140414
  Serious: Yes (Other)
  Sender: FDA-Public Use
  Company Number: US-GLAXOSMITHKLINE-A1025975A

PATIENT
  Age: 71 Year
  Sex: Male

DRUGS (3)
  1. ADVAIR [Suspect]
     Indication: DYSPNOEA
     Dosage: 1PUFF TWICE PER DAY
     Route: 055
     Dates: start: 201301, end: 20130401
  2. OXYGEN [Concomitant]
  3. TIMOLOL EYE DROPS [Concomitant]

REACTIONS (2)
  - Glaucoma [Not Recovered/Not Resolved]
  - Diplopia [Not Recovered/Not Resolved]
